FAERS Safety Report 4743478-6 (Version None)
Quarter: 2005Q3

REPORT INFORMATION
  Report Type: 
  Country: None (occurrence: None)
  Receive Date: 20050812
  Receipt Date: 20050801
  Transmission Date: 20060218
  Serious: Yes (Other)
  Sender: FDA-Public Use
  Company Number: 2005UW11609

PATIENT
  Age: 61 Year
  Sex: Male
  Weight: 102.1 kg

DRUGS (4)
  1. IRESSA [Suspect]
     Indication: PROSTATE CANCER
     Route: 048
     Dates: start: 20050708, end: 20050728
  2. RAD 001 [Suspect]
     Indication: PROSTATE CANCER
     Route: 048
     Dates: start: 20050708, end: 20050728
  3. OXYCONTIN [Concomitant]
  4. ZOMETA [Concomitant]
     Dates: start: 20050614

REACTIONS (1)
  - LEUKOPENIA [None]
